FAERS Safety Report 4461376-2 (Version None)
Quarter: 2004Q3

REPORT INFORMATION
  Report Type: 
  Country: None (occurrence: None)
  Receive Date: 20040928
  Receipt Date: 20040720
  Transmission Date: 20050211
  Serious: Yes (Other)
  Sender: FDA-Public Use
  Company Number: PHEH2004US07774

PATIENT
  Age: 57 Year
  Sex: Female

DRUGS (6)
  1. ZELNORM [Suspect]
     Indication: IRRITABLE BOWEL SYNDROME
     Dosage: 6 MG, QD
     Route: 048
     Dates: start: 20031001
  2. ZELNORM [Suspect]
     Dosage: 4 MG/DAY
     Route: 048
  3. AVALIDE [Concomitant]
     Indication: HYPERTENSION
     Dosage: 150 MG, QD
     Route: 048
  4. AVALIDE [Concomitant]
     Dosage: 300 MG, QD
  5. FOSAMAX [Concomitant]
  6. DULCOLAX [Suspect]
     Indication: CONSTIPATION

REACTIONS (2)
  - BLOOD PRESSURE INCREASED [None]
  - DIARRHOEA [None]
